FAERS Safety Report 7776457-5 (Version None)
Quarter: 2011Q3

REPORT INFORMATION
  Report Type: 
  Country: None (occurrence: None)
  Receive Date: 20110926
  Receipt Date: 20110913
  Transmission Date: 20111222
  Serious: Yes (Hospitalization, Other)
  Sender: FDA-Public Use
  Company Number: US-ELI_LILLY_AND_COMPANY-US201109004101

PATIENT
  Sex: Male

DRUGS (7)
  1. BYSTOLIC [Concomitant]
     Dosage: 5 MG, UNK
  2. OMEPRAZOLE [Concomitant]
     Dosage: 20 MG, UNK
  3. FORTEO [Suspect]
     Indication: OSTEOPOROSIS
     Dosage: 20 UG, QD
     Route: 065
     Dates: start: 20110727
  4. SPIRONOLACTONE [Concomitant]
     Dosage: 25 MG, UNK
  5. MEGESTROL ACETATE [Concomitant]
     Indication: APPETITE DISORDER
     Dosage: 4 MG, BID
  6. FUROSEMIDE [Concomitant]
     Dosage: 40 MG, UNK
  7. CALCIUM CARBONATE [Concomitant]
     Indication: MINERAL SUPPLEMENTATION

REACTIONS (7)
  - BLOOD SODIUM DECREASED [None]
  - PAIN [None]
  - DEPRESSED MOOD [None]
  - DIZZINESS [None]
  - BALANCE DISORDER [None]
  - PELVIC FRACTURE [None]
  - FALL [None]
